FAERS Safety Report 5151170-1 (Version None)
Quarter: 2006Q4

REPORT INFORMATION
  Report Type: 
  Country: None (occurrence: None)
  Receive Date: 20061114
  Receipt Date: 20061114
  Transmission Date: 20070319
  Serious: Yes (Hospitalization)
  Sender: FDA-Public Use
  Company Number: None

PATIENT
  Age: 59 Year
  Sex: Male
  Weight: 83.6 kg

DRUGS (2)
  1. BEVACIZUMAB  GENENTECH [Suspect]
     Indication: LARYNGEAL CANCER
     Dosage: 361 MG IV
     Route: 042
     Dates: start: 20060920
  2. DOCETAXEL [Suspect]
     Dosage: 36 MG IV
     Route: 042
     Dates: start: 20060920

REACTIONS (7)
  - BACILLUS INFECTION [None]
  - HEPATIC FAILURE [None]
  - HYPOGLYCAEMIA [None]
  - PNEUMONIA ASPIRATION [None]
  - SEPSIS [None]
  - SEPTIC SHOCK [None]
  - SPUTUM CULTURE POSITIVE [None]
